FAERS Safety Report 7817875-6 (Version None)
Quarter: 2011Q4

REPORT INFORMATION
  Report Type: 
  Country: None (occurrence: None)
  Receive Date: 20111017
  Receipt Date: 20111006
  Transmission Date: 20120403
  Serious: Yes (Hospitalization)
  Sender: FDA-Public Use
  Company Number: FR-MERCK-1110FRA00048

PATIENT
  Age: 69 Year
  Sex: Male
  Weight: 94 kg

DRUGS (5)
  1. JANUMET [Concomitant]
     Route: 048
     Dates: start: 20100709, end: 20110107
  2. METFORMIN HYDROCHLORIDE AND VILDAGLIPTIN [Concomitant]
     Indication: TYPE 2 DIABETES MELLITUS
     Route: 048
     Dates: start: 20110107, end: 20110401
  3. GLIMEPIRIDE [Suspect]
     Indication: TYPE 2 DIABETES MELLITUS
     Route: 048
     Dates: start: 20110401, end: 20110527
  4. GLIMEPIRIDE [Suspect]
     Route: 048
     Dates: start: 20110528
  5. JANUMET [Suspect]
     Indication: TYPE 2 DIABETES MELLITUS
     Route: 048
     Dates: start: 20110401

REACTIONS (1)
  - LUNG NEOPLASM MALIGNANT [None]
